FAERS Safety Report 23936258 (Version 1)
Quarter: 2024Q2

REPORT INFORMATION
  Report Type: Spontaneous
  Country: FR (occurrence: FR)
  Receive Date: 20240604
  Receipt Date: 20240604
  Transmission Date: 20240715
  Serious: Yes (Hospitalization)
  Sender: FDA-Public Use
  Company Number: None

PATIENT
  Age: 95 Year
  Sex: Female
  Weight: 55.9 kg

DRUGS (14)
  1. RISPERDAL [Suspect]
     Active Substance: RISPERIDONE
     Indication: Behaviour disorder
     Dosage: 1/2.0.1/2
     Route: 048
     Dates: start: 201801, end: 20180130
  2. XANAX [Suspect]
     Active Substance: ALPRAZOLAM
     Indication: Behaviour disorder
     Dosage: 1 TABLET MORNING, 1 EVENING
     Route: 048
     Dates: end: 20180130
  3. BROMAZEPAM [Suspect]
     Active Substance: BROMAZEPAM
     Indication: Product used for unknown indication
     Dosage: 1/4.0.0
     Route: 048
     Dates: end: 20180130
  4. IMOVANE [Suspect]
     Active Substance: ZOPICLONE
     Indication: Insomnia
     Dosage: 1 AT BEDTIME
     Route: 048
     Dates: end: 201801
  5. OXAZEPAM [Suspect]
     Active Substance: OXAZEPAM
     Indication: Product used for unknown indication
     Dosage: 0.0.1
     Route: 048
     Dates: end: 201801
  6. BISOPROLOL [Concomitant]
     Active Substance: BISOPROLOL\BISOPROLOL FUMARATE
     Indication: Myocardial ischaemia
     Dosage: 1.0.0
     Route: 048
  7. ALFUZOSIN [Concomitant]
     Active Substance: ALFUZOSIN
     Indication: Urinary retention
     Dosage: 0.0.1
     Route: 048
  8. FUROSEMIDE [Concomitant]
     Active Substance: FUROSEMIDE
     Indication: Myocardial ischaemia
     Dosage: 1.0.020 MG IN THE MORNING
     Route: 048
  9. RAMIPRIL [Concomitant]
     Active Substance: RAMIPRIL
     Indication: Myocardial ischaemia
     Dosage: 1/2.0.0
     Route: 048
  10. MIRTAZAPINE [Concomitant]
     Active Substance: MIRTAZAPINE
     Indication: Behaviour disorder
     Dosage: 0.0.2
     Route: 048
  11. ESOMEPRAZOLE MAGNESIUM [Concomitant]
     Active Substance: ESOMEPRAZOLE MAGNESIUM
     Indication: Abdominal pain upper
     Dosage: 0.0.1
     Route: 048
  12. KARDEGIC [Concomitant]
     Active Substance: ASPIRIN DL-LYSINE
     Indication: Myocardial ischaemia
     Dosage: 1 AT LUNCHTIME
     Route: 048
  13. ACETAMINOPHEN [Concomitant]
     Active Substance: ACETAMINOPHEN
     Indication: Pain
     Dosage: 1.1.1
     Route: 048
  14. PLAVIX [Concomitant]
     Active Substance: CLOPIDOGREL BISULFATE
     Indication: Product used for unknown indication
     Dosage: 1.0.0
     Route: 048

REACTIONS (4)
  - Hallucination, visual [Recovered/Resolved]
  - Agitation [Recovering/Resolving]
  - Confusional state [Recovering/Resolving]
  - Fall [Recovered/Resolved]

NARRATIVE: CASE EVENT DATE: 20180107
